FAERS Safety Report 6317942-2 (Version None)
Quarter: 2009Q3

REPORT INFORMATION
  Report Type: 
  Country: None (occurrence: None)
  Receive Date: 20090821
  Receipt Date: 20090812
  Transmission Date: 20100115
  Serious: Yes (Hospitalization)
  Sender: FDA-Public Use
  Company Number: JP-PFIZER INC-2009255498

PATIENT
  Age: 44 Year

DRUGS (1)
  1. SUNITINIB MALATE [Suspect]
     Indication: PHAEOCHROMOCYTOMA
     Dosage: 50 MG, DAILY
     Route: 048

REACTIONS (2)
  - HYPOTHYROIDISM [None]
  - PLEURAL EFFUSION [None]
